FAERS Safety Report 25128318 (Version 2)
Quarter: 2025Q2

REPORT INFORMATION
  Report Type: Spontaneous
  Country: CA (occurrence: CA)
  Receive Date: 20250327
  Receipt Date: 20250523
  Transmission Date: 20250716
  Serious: Yes (Other)
  Sender: PFIZER
  Company Number: CA-PFIZER INC-202400208006

PATIENT
  Age: 60 Year
  Sex: Female

DRUGS (2)
  1. ABRILADA [Suspect]
     Active Substance: ADALIMUMAB-AFZB
     Indication: Psoriasis
     Route: 058
     Dates: start: 20240308, end: 2024
  2. ABRILADA [Suspect]
     Active Substance: ADALIMUMAB-AFZB
     Route: 058
     Dates: start: 2025

REACTIONS (10)
  - Condition aggravated [Not Recovered/Not Resolved]
  - Superinfection [Not Recovered/Not Resolved]
  - Hepatic fibrosis [Unknown]
  - Oral fibroma [Not Recovered/Not Resolved]
  - Drug ineffective [Unknown]
  - Blood iron decreased [Unknown]
  - Platelet count decreased [Unknown]
  - Eye infection [Unknown]
  - Hordeolum [Unknown]
  - Localised infection [Unknown]

NARRATIVE: CASE EVENT DATE: 20240101
